FAERS Safety Report 8142431-2 (Version None)
Quarter: 2012Q1

REPORT INFORMATION
  Report Type: 
  Country: None (occurrence: None)
  Receive Date: 20120216
  Receipt Date: 20120207
  Transmission Date: 20120608
  Serious: Yes (Hospitalization, Other)
  Sender: FDA-Public Use
  Company Number: US-BAXTER-2012BH002173

PATIENT
  Age: 66 Year
  Sex: Male

DRUGS (4)
  1. DIANEAL [Suspect]
     Indication: PERITONEAL DIALYSIS
     Route: 033
     Dates: start: 20111219, end: 20111201
  2. DIANEAL [Suspect]
     Route: 033
  3. DIANEAL [Suspect]
     Indication: PERITONEAL DIALYSIS
     Route: 033
     Dates: start: 20111219, end: 20111201
  4. DIANEAL [Suspect]
     Route: 033

REACTIONS (3)
  - MYOCARDIAL INFARCTION [None]
  - ASTHENIA [None]
  - CORONARY ARTERY OCCLUSION [None]
